FAERS Safety Report 4387100-X (Version None)
Quarter: 2004Q2

REPORT INFORMATION
  Report Type: 
  Country: None (occurrence: None)
  Receive Date: 20040630
  Receipt Date: 20040308
  Transmission Date: 20050107
  Serious: No
  Sender: FDA-Public Use
  Company Number: US-GLAXOSMITHKLINE-A0501830A

PATIENT
  Sex: Female

DRUGS (5)
  1. ADVAIR HFA [Suspect]
     Indication: ASTHMA
     Route: 055
  2. ALBUTEROL [Concomitant]
  3. PREDNISONE [Concomitant]
  4. PREVACID [Concomitant]
  5. SINGULAIR [Concomitant]

REACTIONS (4)
  - BONE PAIN [None]
  - FLUID RETENTION [None]
  - SENSORY DISTURBANCE [None]
  - WEIGHT INCREASED [None]
